FAERS Safety Report 21302265 (Version 1)
Quarter: 2022Q3

REPORT INFORMATION
  Report Type: Spontaneous
  Country: US (occurrence: US)
  Receive Date: 20220907
  Receipt Date: 20220907
  Transmission Date: 20221027
  Serious: No
  Sender: FDA-Public Use
  Company Number: US-PFIZER INC-202201134934

PATIENT
  Sex: Female

DRUGS (3)
  1. TOVIAZ [Suspect]
     Active Substance: FESOTERODINE FUMARATE
     Dosage: UNK
  2. LISINOPRIL [Concomitant]
     Active Substance: LISINOPRIL
     Indication: Thyroid disorder
     Dosage: UNK
  3. LEVOTHYROXINE [Concomitant]
     Active Substance: LEVOTHYROXINE
     Indication: Thyroid disorder
     Dosage: UNK

REACTIONS (2)
  - Constipation [Unknown]
  - Dry mouth [Unknown]
